FAERS Safety Report 8181461-1 (Version None)
Quarter: 2012Q1

REPORT INFORMATION
  Report Type: 
  Country: None (occurrence: None)
  Receive Date: 20120302
  Receipt Date: 20120301
  Transmission Date: 20120608
  Serious: Yes (Death, Hospitalization)
  Sender: FDA-Public Use
  Company Number: CA-B.I. PHARMACEUTICALS,INC./RIDGEFIELD-2012-CN-00471CN

PATIENT
  Age: 87 Year
  Sex: Male

DRUGS (5)
  1. LIPITOR [Concomitant]
  2. PRADAXA [Suspect]
     Dosage: 220 MG
     Dates: start: 20110916, end: 20111003
  3. LASIX [Concomitant]
  4. NITROGLYCERIN [Concomitant]
  5. BETA BLOCKER [Concomitant]

REACTIONS (2)
  - GASTROINTESTINAL HAEMORRHAGE [None]
  - CARDIAC FAILURE [None]
